FAERS Safety Report 16783438 (Version 3)
Quarter: 2020Q3

REPORT INFORMATION
  Report Type: Spontaneous
  Country: CA (occurrence: CA)
  Receive Date: 20190907
  Receipt Date: 20200714
  Transmission Date: 20201102
  Serious: Yes (Life-Threatening, Hospitalization, Other)
  Sender: FDA-Public Use
  Company Number: CA-009507513-1909CAN002250

PATIENT
  Age: 29 Year
  Sex: Male

DRUGS (4)
  1. ESTROGEL [Suspect]
     Active Substance: ESTRADIOL
     Indication: TRANSGENDER HORMONAL THERAPY
     Dosage: 4 MILLIGRAM, 2 EVERY 1 DAYS; DOSAGE FORM: NOT SPECIFIED
     Route: 060
  2. CYPROTERONE [Suspect]
     Active Substance: CYPROTERONE
     Indication: TRANSGENDER HORMONAL THERAPY
     Dosage: 25 MILLIGRAM,1 EVERY 1 DAYS
     Route: 065
  3. PROPECIA [Suspect]
     Active Substance: FINASTERIDE
     Indication: TRANSGENDER HORMONAL THERAPY
     Dosage: 1 MILLIGRAM, 1 EVERY 1 DAYS
     Route: 065
  4. ESTROGEL [Suspect]
     Active Substance: ESTRADIOL
     Dosage: 8 MILLIGRAM, 1 EVERY 5 DAYS; DOSAGE FORM: NOT SPECIFIED
     Route: 060

REACTIONS (3)
  - Arrhythmia [Unknown]
  - Off label use [Unknown]
  - Ventricular extrasystoles [Unknown]
